FAERS Safety Report 7003281-3 (Version None)
Quarter: 2010Q3

REPORT INFORMATION
  Report Type: 
  Country: None (occurrence: None)
  Receive Date: 20100920
  Receipt Date: 20100907
  Transmission Date: 20110219
  Serious: Yes (Hospitalization)
  Sender: FDA-Public Use
  Company Number: DE-GENENTECH-306541

PATIENT
  Age: 55 Year
  Sex: Female
  Weight: 83 kg

DRUGS (9)
  1. RITUXIMAB [Suspect]
     Indication: CHRONIC LYMPHOCYTIC LEUKAEMIA
     Dosage: 500 MG/M2, UNK
     Route: 042
     Dates: start: 20100705
  2. RITUXIMAB [Suspect]
     Dosage: UNK
     Route: 042
     Dates: start: 20100830
  3. FLUDARABINE [Suspect]
     Indication: CHRONIC LYMPHOCYTIC LEUKAEMIA
     Dosage: 48 MG, UNK
     Route: 042
     Dates: start: 20100707
  4. FLUDARABINE [Suspect]
     Dosage: UNK
     Route: 042
     Dates: start: 20100830
  5. CYCLOPHOSPHAMIDE [Suspect]
     Indication: CHRONIC LYMPHOCYTIC LEUKAEMIA
     Dosage: 478 MG, UNK
     Route: 042
     Dates: start: 20100707
  6. CYCLOPHOSPHAMIDE [Suspect]
     Dosage: UNK
     Route: 042
     Dates: start: 20100830
  7. COTRIM [Concomitant]
     Indication: PRODUCT USED FOR UNKNOWN INDICATION
     Dosage: UNK
     Dates: start: 20100705
  8. PANTOPRAZOLE SODIUM [Concomitant]
     Indication: PRODUCT USED FOR UNKNOWN INDICATION
     Dosage: 40 MG, QAM
     Dates: start: 20100705
  9. ACICLOVIR [Concomitant]
     Indication: PRODUCT USED FOR UNKNOWN INDICATION
     Dosage: 400 MG, UNK
     Dates: start: 20100705

REACTIONS (1)
  - ACUTE VESTIBULAR SYNDROME [None]
